FAERS Safety Report 13865534 (Version 1)
Quarter: 2017Q3

REPORT INFORMATION
  Report Type: Spontaneous
  Country: FR (occurrence: FR)
  Receive Date: 20170814
  Receipt Date: 20170814
  Transmission Date: 20171127
  Serious: Yes (Hospitalization)
  Sender: FDA-Public Use
  Company Number: FR-LPDUSPRD-20171110

PATIENT
  Age: 16 Year
  Sex: Female

DRUGS (4)
  1. VENOFER [Suspect]
     Active Substance: IRON SUCROSE
     Dosage: 100 MG OD
     Route: 041
     Dates: start: 20170623, end: 20170623
  2. IMUREL [Suspect]
     Active Substance: AZATHIOPRINE SODIUM
     Dosage: 100 MG
     Route: 048
     Dates: start: 20170607, end: 20170626
  3. LEELOO [Concomitant]
     Active Substance: ETHINYL ESTRADIOL\LEVONORGESTREL
     Dosage: UNKNOWN
     Route: 048
     Dates: start: 20170623
  4. INFLECTRA [Suspect]
     Active Substance: INFLIXIMAB-DYYB
     Dosage: 250 MG
     Route: 042
     Dates: start: 20170610, end: 20170623

REACTIONS (1)
  - Pancreatitis acute [Recovered/Resolved]
